FAERS Safety Report 5756350-X (Version None)
Quarter: 2008Q2

REPORT INFORMATION
  Report Type: 
  Country: None (occurrence: None)
  Receive Date: 20080528
  Receipt Date: 20080528
  Transmission Date: 20081010
  Serious: Yes (Other)
  Sender: FDA-Public Use
  Company Number: None

PATIENT
  Sex: Female
  Weight: 27.6694 kg

DRUGS (2)
  1. SINGULAIR [Suspect]
     Indication: ASTHMA
     Dosage: 1 PILL ONCE A DAY PO
     Route: 048
     Dates: start: 20011201, end: 20080526
  2. SINGULAIR [Suspect]
     Indication: MULTIPLE ALLERGIES
     Dosage: 1 PILL ONCE A DAY PO
     Route: 048
     Dates: start: 20011201, end: 20080526

REACTIONS (6)
  - ABNORMAL BEHAVIOUR [None]
  - ANGER [None]
  - CRYING [None]
  - MOOD SWINGS [None]
  - SOMNAMBULISM [None]
  - SUICIDAL IDEATION [None]
